FAERS Safety Report 24908934 (Version 2)
Quarter: 2025Q3

REPORT INFORMATION
  Report Type: Report from Study
  Country: IN (occurrence: IN)
  Receive Date: 20250131
  Receipt Date: 20250801
  Transmission Date: 20251021
  Serious: Yes (Death)
  Sender: SANDOZ
  Company Number: IN-002147023-NVSC2024IN200811

PATIENT
  Age: 43 Year
  Sex: Female
  Weight: 53.25 kg

DRUGS (5)
  1. FULVESTRANT [Suspect]
     Active Substance: FULVESTRANT
     Indication: Breast cancer
     Route: 030
     Dates: start: 20240601, end: 20240924
  2. LINAGLIPTIN [Concomitant]
     Active Substance: LINAGLIPTIN
     Indication: Hyperglycaemia
     Dosage: 5 MG, QD
     Route: 048
     Dates: start: 20240629
  3. METFORMIN [Concomitant]
     Active Substance: METFORMIN HYDROCHLORIDE
     Indication: Hyperglycaemia
     Dosage: 500 MG, TID
     Route: 048
     Dates: start: 20240629
  4. PIOGLITAZONE [Concomitant]
     Active Substance: PIOGLITAZONE
     Indication: Hyperglycaemia
     Dosage: 30 MG, QD
     Route: 048
     Dates: start: 20240629
  5. VOGLIBOSE [Concomitant]
     Active Substance: VOGLIBOSE
     Indication: Hyperglycaemia
     Dosage: 0.3 MG, TID
     Route: 048
     Dates: start: 20240629

REACTIONS (1)
  - Death [Fatal]

NARRATIVE: CASE EVENT DATE: 20241010
